FAERS Safety Report 7421278-6 (Version None)
Quarter: 2011Q2

REPORT INFORMATION
  Report Type: 
  Country: None (occurrence: None)
  Receive Date: 20110418
  Receipt Date: 20110406
  Transmission Date: 20111010
  Serious: Yes (Hospitalization, Disabling)
  Sender: FDA-Public Use
  Company Number: US-MERCK-1104USA00682

PATIENT
  Age: 57 Year
  Sex: Female

DRUGS (1)
  1. ZOCOR [Suspect]
     Indication: BLOOD CHOLESTEROL INCREASED
     Route: 048

REACTIONS (33)
  - FATIGUE [None]
  - GASTROOESOPHAGEAL REFLUX DISEASE [None]
  - URINARY TRACT INFECTION [None]
  - UPPER RESPIRATORY TRACT INFECTION [None]
  - OEDEMA PERIPHERAL [None]
  - HIATUS HERNIA [None]
  - BONE PAIN [None]
  - TRANSIENT ISCHAEMIC ATTACK [None]
  - ARTHRITIS [None]
  - MUSCULOSKELETAL DISORDER [None]
  - MUSCLE SPASMS [None]
  - PRURITUS [None]
  - RENAL FAILURE CHRONIC [None]
  - DISABILITY [None]
  - PAIN IN JAW [None]
  - HEADACHE [None]
  - INCONTINENCE [None]
  - AMNESIA [None]
  - WEIGHT INCREASED [None]
  - TOOTH EROSION [None]
  - CONSTIPATION [None]
  - DEPRESSION [None]
  - BONE DISORDER [None]
  - MUCOSAL DRYNESS [None]
  - INSOMNIA [None]
  - ASTHENIA [None]
  - DRY SKIN [None]
  - MUSCLE INJURY [None]
  - URINE OUTPUT INCREASED [None]
  - ADVERSE EVENT [None]
  - NEUROMYOPATHY [None]
  - FLUSHING [None]
  - DIARRHOEA [None]
